FAERS Safety Report 6265495-X (Version None)
Quarter: 2009Q3

REPORT INFORMATION
  Report Type: 
  Country: None (occurrence: None)
  Receive Date: 20090713
  Receipt Date: 20090709
  Transmission Date: 20100115
  Serious: Yes (Death, Hospitalization)
  Sender: FDA-Public Use
  Company Number: PHHY2008MX31195

PATIENT
  Sex: Male

DRUGS (1)
  1. TRILEPTAL [Suspect]
     Indication: EPILEPSY
     Dosage: 3 TABLETS PER DAY
     Route: 048
     Dates: start: 20070801

REACTIONS (3)
  - CARDIAC FAILURE [None]
  - CONVULSION [None]
  - MYOCARDIAL INFARCTION [None]
